FAERS Safety Report 12188177 (Version 2)
Quarter: 2016Q3

REPORT INFORMATION
  Report Type: Spontaneous
  Country: US (occurrence: US)
  Receive Date: 20160317
  Receipt Date: 20160701
  Transmission Date: 20161109
  Serious: Yes (Hospitalization, Other)
  Sender: FDA-Public Use
  Company Number: US-GLAXOSMITHKLINE-US2016037150

PATIENT
  Age: 56 Year
  Sex: Female

DRUGS (11)
  1. ADVAIR DISKUS [Suspect]
     Active Substance: FLUTICASONE PROPIONATE\SALMETEROL XINAFOATE
     Dosage: 250/50 UG, 1 PUFF(S), QD
     Route: 055
     Dates: start: 201511
  2. PREDNISOLONE. [Concomitant]
     Active Substance: PREDNISOLONE
  3. MIRALAX [Concomitant]
     Active Substance: POLYETHYLENE GLYCOL 3350
  4. BUTALBITAL [Concomitant]
     Active Substance: BUTALBITAL
  5. AVELOX [Suspect]
     Active Substance: MOXIFLOXACIN HYDROCHLORIDE
     Indication: PRODUCT USED FOR UNKNOWN INDICATION
  6. DIAZEPAM. [Concomitant]
     Active Substance: DIAZEPAM
  7. TUMS [Concomitant]
     Active Substance: CALCIUM CARBONATE
  8. ADVAIR DISKUS [Suspect]
     Active Substance: FLUTICASONE PROPIONATE\SALMETEROL XINAFOATE
     Indication: ASTHMA
     Dosage: 500/50 MCG; 1 PUFF(S), BID
     Route: 055
     Dates: start: 2000, end: 201511
  9. MORPHINE [Concomitant]
     Active Substance: MORPHINE
  10. ONDANSETRON [Concomitant]
     Active Substance: ONDANSETRON
  11. PRILOSEC [Concomitant]
     Active Substance: OMEPRAZOLE MAGNESIUM

REACTIONS (9)
  - Nasal polypectomy [Not Recovered/Not Resolved]
  - Malaise [Not Recovered/Not Resolved]
  - Haemorrhage [Unknown]
  - Systemic inflammatory response syndrome [Recovering/Resolving]
  - Underdose [Unknown]
  - Lung infection [Recovered/Resolved]
  - Aspergillus infection [Recovered/Resolved]
  - Osteoporosis [Unknown]
  - Sinus operation [Unknown]

NARRATIVE: CASE EVENT DATE: 2000
